FAERS Safety Report 13562965 (Version 1)
Quarter: 2017Q2

REPORT INFORMATION
  Report Type: Spontaneous
  Country: US (occurrence: US)
  Receive Date: 20170519
  Receipt Date: 20170519
  Transmission Date: 20170830
  Serious: Yes (Hospitalization)
  Sender: FDA-Public Use
  Company Number: US-OREXIGEN THERAPEUTICS, INC.-2020975

PATIENT
  Age: 80 Year
  Sex: Female
  Weight: 120.6 kg

DRUGS (2)
  1. CONTRAVE [Suspect]
     Active Substance: BUPROPION HYDROCHLORIDE\NALTREXONE HYDROCHLORIDE
     Route: 065
     Dates: end: 201704
  2. CONTRAVE [Suspect]
     Active Substance: BUPROPION HYDROCHLORIDE\NALTREXONE HYDROCHLORIDE
     Indication: WEIGHT CONTROL
     Route: 065
     Dates: start: 2014

REACTIONS (5)
  - Hypersensitivity [Recovered/Resolved]
  - Joint injury [Unknown]
  - Urticaria [Recovered/Resolved]
  - Road traffic accident [Unknown]
  - Pelvic fracture [Unknown]
